FAERS Safety Report 8874062 (Version 1)
Quarter: 2012Q4

REPORT INFORMATION
  Report Type: 
  Country: PL (occurrence: PL)
  Receive Date: 20121031
  Receipt Date: 20121031
  Transmission Date: 20130627
  Serious: Yes (Other)
  Sender: FDA-Public Use
  Company Number: PL-CELGENEUS-129-21880-12102356

PATIENT

DRUGS (10)
  1. REVLIMID [Suspect]
     Indication: MULTIPLE MYELOMA
     Route: 048
     Dates: start: 2005, end: 2009
  2. REVLIMID [Suspect]
     Dosage: 25 Milligram
     Route: 048
  3. REVLIMID [Suspect]
     Dosage: 15 Milligram
     Route: 048
  4. REVLIMID [Suspect]
     Dosage: 10 Milligram
     Route: 048
  5. MELPHALAN [Concomitant]
     Indication: MULTIPLE MYELOMA
     Route: 065
  6. PREDNISONE [Concomitant]
     Indication: MULTIPLE MYELOMA
     Route: 065
  7. PLACEBO [Concomitant]
     Indication: MULTIPLE MYELOMA
     Route: 065
     Dates: start: 2005, end: 2009
  8. PLACEBO [Concomitant]
     Dosage: 15 Milligram
     Route: 065
  9. PLACEBO [Concomitant]
     Dosage: 10 Milligram
     Route: 065
  10. ANTITHROMBOTIC AGENTS [Concomitant]
     Indication: THROMBOSIS PROPHYLAXIS
     Route: 065

REACTIONS (4)
  - Second primary malignancy [Unknown]
  - Thrombosis [Unknown]
  - Pancytopenia [Unknown]
  - Adverse event [Unknown]
